FAERS Safety Report 13816205 (Version 1)
Quarter: 2017Q3

REPORT INFORMATION
  Report Type: Spontaneous
  Country: US (occurrence: US)
  Receive Date: 20170731
  Receipt Date: 20170731
  Transmission Date: 20171127
  Serious: No
  Sender: FDA-Public Use
  Company Number: US-JNJFOC-20170323465

PATIENT
  Age: 16 Year
  Sex: Male
  Weight: 66.68 kg

DRUGS (3)
  1. ZYRTEC [Suspect]
     Active Substance: CETIRIZINE HYDROCHLORIDE
     Indication: SNEEZING
     Dosage: 1 TABLET A DAY
     Route: 048
     Dates: start: 20170307, end: 20170318
  2. ZYRTEC [Suspect]
     Active Substance: CETIRIZINE HYDROCHLORIDE
     Indication: EYE PRURITUS
     Dosage: 1 TABLET A DAY
     Route: 048
     Dates: start: 20170307, end: 20170318
  3. ZYRTEC [Suspect]
     Active Substance: CETIRIZINE HYDROCHLORIDE
     Indication: MULTIPLE ALLERGIES
     Dosage: 1 TABLET A DAY
     Route: 048
     Dates: start: 20170307, end: 20170318

REACTIONS (1)
  - Drug ineffective [Unknown]
